FAERS Safety Report 12955125 (Version 1)
Quarter: 2016Q4

REPORT INFORMATION
  Report Type: Spontaneous
  Country: US (occurrence: US)
  Receive Date: 20161118
  Receipt Date: 20161118
  Transmission Date: 20170207
  Serious: No
  Sender: FDA-Public Use
  Company Number: US-PERRIGO-15US011130

PATIENT
  Sex: Male
  Weight: 60.32 kg

DRUGS (2)
  1. METAMUCIL [Concomitant]
     Active Substance: PLANTAGO SEED
     Indication: SUPPLEMENTATION THERAPY
     Dosage: UNK
     Route: 065
     Dates: start: 2015
  2. POLYETHYLENE GLYCOL 3350. [Suspect]
     Active Substance: POLYETHYLENE GLYCOL 3350
     Indication: CONSTIPATION
     Dosage: 17 G, QD
     Route: 048
     Dates: start: 201502, end: 2015

REACTIONS (3)
  - Incorrect drug administration duration [Recovered/Resolved]
  - Gastrointestinal motility disorder [Unknown]
  - Abnormal faeces [Unknown]

NARRATIVE: CASE EVENT DATE: 2015
